FAERS Safety Report 9989836 (Version 1)
Quarter: 2014Q1

REPORT INFORMATION
  Report Type: Report from Study
  Country: US (occurrence: US)
  Receive Date: 20140310
  Receipt Date: 20140310
  Transmission Date: 20141002
  Serious: No
  Sender: FDA-Public Use
  Company Number: US-ABBVIE-13P-163-1129002-00

PATIENT
  Age: 41 Year
  Sex: Male

DRUGS (3)
  1. HUMIRA [Suspect]
     Indication: RHEUMATOID ARTHRITIS
     Dates: start: 201303
  2. ARAVA [Concomitant]
     Indication: PRODUCT USED FOR UNKNOWN INDICATION
     Dosage: SAYS GOING BACK TO 5MG/DAY
  3. CLONOPIN [Concomitant]
     Indication: INSOMNIA

REACTIONS (16)
  - Incorrect dose administered [Recovered/Resolved]
  - Injection site pain [Not Recovered/Not Resolved]
  - Injection site bruising [Recovering/Resolving]
  - Rheumatoid arthritis [Not Recovered/Not Resolved]
  - Arthralgia [Not Recovered/Not Resolved]
  - Sinusitis [Recovering/Resolving]
  - Gait disturbance [Recovering/Resolving]
  - Dysstasia [Not Recovered/Not Resolved]
  - Hyperhidrosis [Not Recovered/Not Resolved]
  - Fall [Recovered/Resolved]
  - Pruritus [Unknown]
  - Cough [Unknown]
  - Sinus congestion [Unknown]
  - Sinus headache [Unknown]
  - Joint swelling [Unknown]
  - Injection site bruising [Unknown]
